FAERS Safety Report 10356528 (Version 3)
Quarter: 2014Q3

REPORT INFORMATION
  Report Type: Spontaneous
  Country: US (occurrence: US)
  Receive Date: 20140801
  Receipt Date: 20140923
  Transmission Date: 20150326
  Serious: No
  Sender: FDA-Public Use
  Company Number: US-PFIZER INC-2014213957

PATIENT
  Sex: Female

DRUGS (1)
  1. VERAPAMIL HCL [Suspect]
     Active Substance: VERAPAMIL HYDROCHLORIDE
     Dosage: UNK

REACTIONS (5)
  - Dyspnoea [Unknown]
  - Drug hypersensitivity [Unknown]
  - Peripheral swelling [Unknown]
  - Throat irritation [Unknown]
  - Nausea [Unknown]
